FAERS Safety Report 24552192 (Version 1)
Quarter: 2024Q4

REPORT INFORMATION
  Report Type: Spontaneous
  Country: DE (occurrence: DE)
  Receive Date: 20241026
  Receipt Date: 20241026
  Transmission Date: 20250114
  Serious: Yes (Other)
  Sender: TEVA
  Company Number: None

PATIENT
  Age: 72 Year
  Sex: Male
  Weight: 96 kg

DRUGS (1)
  1. DICLOFENAC [Suspect]
     Active Substance: DICLOFENAC
     Indication: Back pain
     Dosage: 1-2X/DAY 12.06-16.06, 25.06.-27.06, 29.07.-30.07, 06.08.-08.08, 20.08.-22.08, 12.09;DICLO PAIN GE...
     Route: 003
     Dates: start: 202406, end: 202409

REACTIONS (3)
  - Arrhythmia [Recovered/Resolved]
  - Arrhythmia supraventricular [Recovered/Resolved]
  - Ventricular arrhythmia [Recovered/Resolved]

NARRATIVE: CASE EVENT DATE: 20240101
